FAERS Safety Report 4532989-4 (Version None)
Quarter: 2005Q1

REPORT INFORMATION
  Report Type: 
  Country: None (occurrence: None)
  Receive Date: 20041206
  Receipt Date: 20041015
  Transmission Date: 20050727
  Serious: No
  Sender: FDA-Public Use
  Company Number: USA041081226

PATIENT
  Sex: Male

DRUGS (4)
  1. CYMBALTA [Suspect]
     Indication: ANXIETY
     Dates: start: 20041009, end: 20041015
  2. ZYPREXA [Concomitant]
  3. AMBIEN [Concomitant]
  4. LEXAPRO [Concomitant]

REACTIONS (1)
  - VISION BLURRED [None]
